FAERS Safety Report 23424264 (Version 1)
Quarter: 2024Q1

REPORT INFORMATION
  Report Type: Spontaneous
  Country: US (occurrence: US)
  Receive Date: 20240120
  Receipt Date: 20240120
  Transmission Date: 20240409
  Serious: No
  Sender: FDA-Public Use
  Company Number: US-AUROBINDO-AUR-APL-2023-029864

PATIENT
  Age: 84 Year
  Sex: Male
  Weight: 65.7 kg

DRUGS (1)
  1. CEFDINIR [Suspect]
     Active Substance: CEFDINIR
     Indication: Pharyngitis
     Dosage: UNK (125 MG/5 ML,ONCE IN MORNING AND ONCE IN THE EVENING)
     Route: 048

REACTIONS (3)
  - Dysphagia [Unknown]
  - Product use complaint [Unknown]
  - Product physical issue [Unknown]
